FAERS Safety Report 7007252-2 (Version None)
Quarter: 2010Q3

REPORT INFORMATION
  Report Type: 
  Country: None (occurrence: None)
  Receive Date: 20100920
  Receipt Date: 20100902
  Transmission Date: 20110219
  Serious: Yes (Other)
  Sender: FDA-Public Use
  Company Number: ACO_01696_2010

PATIENT
  Sex: Male
  Weight: 88.4514 kg

DRUGS (3)
  1. AMPYRA [Suspect]
     Indication: GAIT DISTURBANCE
     Dosage: (10 MG BID ORAL)
     Route: 048
     Dates: start: 20100731
  2. TYLENOL-500 [Concomitant]
  3. TRAMADOL HCL [Concomitant]

REACTIONS (29)
  - BALANCE DISORDER [None]
  - BURNING SENSATION [None]
  - CHEST DISCOMFORT [None]
  - CHEST PAIN [None]
  - CONSTIPATION [None]
  - CORONARY ARTERY DISEASE [None]
  - DEHYDRATION [None]
  - DIZZINESS [None]
  - DYSPEPSIA [None]
  - DYSPNOEA [None]
  - FATIGUE [None]
  - FEELING ABNORMAL [None]
  - FEELING HOT [None]
  - GAIT DISTURBANCE [None]
  - GINGIVAL BLEEDING [None]
  - GINGIVAL BLISTER [None]
  - HYPERTENSION [None]
  - INSOMNIA [None]
  - MULTIPLE SCLEROSIS RELAPSE [None]
  - MUSCLE SPASMS [None]
  - MUSCULAR WEAKNESS [None]
  - NECK PAIN [None]
  - NIGHT SWEATS [None]
  - OEDEMA PERIPHERAL [None]
  - PARAESTHESIA [None]
  - STRESS [None]
  - TREMOR [None]
  - VERTIGO [None]
  - VIRAL INFECTION [None]
